FAERS Safety Report 8827748 (Version 1)
Quarter: 2012Q4

REPORT INFORMATION
  Report Type: Report from Study
  Country: US (occurrence: US)
  Receive Date: 20121005
  Receipt Date: 20121005
  Transmission Date: 20130627
  Serious: Yes (Other)
  Sender: FDA-Public Use
  Company Number: US-JNJFOC-20120912924

PATIENT
  Sex: Male
  Weight: 114.31 kg

DRUGS (3)
  1. XARELTO [Suspect]
     Indication: CEREBROVASCULAR ACCIDENT PROPHYLAXIS
     Route: 048
     Dates: start: 20120719
  2. XARELTO [Suspect]
     Indication: ATRIAL FIBRILLATION
     Route: 048
     Dates: start: 20120719
  3. UNSPECIFIED HERBAL SUPPLEMENTS [Concomitant]
     Route: 048

REACTIONS (4)
  - Skin haemorrhage [Recovered/Resolved]
  - Asthenia [Not Recovered/Not Resolved]
  - Labile blood pressure [Unknown]
  - Weight decreased [Not Recovered/Not Resolved]
